FAERS Safety Report 8854152 (Version 1)
Quarter: 2012Q4

REPORT INFORMATION
  Report Type: Spontaneous
  Country: US (occurrence: None)
  Receive Date: 20121019
  Receipt Date: 20121019
  Transmission Date: 20130627
  Serious: Yes (Life-Threatening, Hospitalization, Disabling)
  Sender: FDA-Public Use
  Company Number: None

PATIENT
  Age: 33 Year
  Sex: Female
  Weight: 56.7 kg

DRUGS (1)
  1. MIRENA [Suspect]
     Indication: CONTRACEPTION
     Dates: start: 20101105, end: 20120824

REACTIONS (6)
  - Ectopic pregnancy [None]
  - Device dislocation [None]
  - Fallopian tube perforation [None]
  - Ruptured ectopic pregnancy [None]
  - Device dislocation [None]
  - Exposure during pregnancy [None]
